FAERS Safety Report 16497541 (Version 2)
Quarter: 2019Q3

REPORT INFORMATION
  Report Type: Spontaneous
  Country: CH (occurrence: CH)
  Receive Date: 20190628
  Receipt Date: 20190710
  Transmission Date: 20191004
  Serious: Yes (Other)
  Sender: FDA-Public Use
  Company Number: CH-ASTRAZENECA-2019SE93079

PATIENT
  Age: 27158 Day
  Sex: Female

DRUGS (23)
  1. CIPROFLOXACIN. [Suspect]
     Active Substance: CIPROFLOXACIN
     Dosage: 250.0MG UNKNOWN
     Route: 048
     Dates: start: 20190607, end: 20190612
  2. MELATONIN [Concomitant]
     Active Substance: MELATONIN
     Dates: start: 20190604
  3. DAFALGAN [Concomitant]
     Active Substance: ACETAMINOPHEN
     Dosage: AS NECESSARY
  4. BENERVA [Concomitant]
     Active Substance: THIAMINE HYDROCHLORIDE
     Dates: start: 20190603
  5. CORDARONE [Suspect]
     Active Substance: AMIODARONE HYDROCHLORIDE
     Dosage: 200.0MG UNKNOWN
     Route: 048
     Dates: end: 20190403
  6. PASPERTIN [Concomitant]
     Dosage: AS NECESSARY
     Dates: start: 20190613
  7. ATROVENT [Concomitant]
     Active Substance: IPRATROPIUM BROMIDE
     Dates: start: 20190605
  8. ANXIOLIT [Concomitant]
     Active Substance: OXAZEPAM
     Dosage: AS NECESSARY
  9. HEPARIN [Suspect]
     Active Substance: HEPARIN SODIUM
     Dosage: 5000.0IU UNKNOWN
     Route: 058
     Dates: start: 20190603, end: 20190604
  10. LAXOBERON [Concomitant]
     Active Substance: SODIUM PICOSULFATE
     Dosage: AS NECESSARY
     Dates: start: 20190603
  11. XARELTO [Concomitant]
     Active Substance: RIVAROXABAN
     Dates: start: 20190613
  12. CLEXANE [Suspect]
     Active Substance: ENOXAPARIN SODIUM
     Dosage: 40.0MG UNKNOWN
     Route: 058
     Dates: start: 20190609, end: 20190612
  13. DAFALGAN [Concomitant]
     Active Substance: ACETAMINOPHEN
     Route: 048
     Dates: start: 20190609, end: 20190609
  14. CRESTOR [Suspect]
     Active Substance: ROSUVASTATIN CALCIUM
     Dosage: 20.0MG UNKNOWN
     Route: 048
     Dates: end: 20190614
  15. CLEXANE [Suspect]
     Active Substance: ENOXAPARIN SODIUM
     Dosage: 30.0MG UNKNOWN
     Route: 058
     Dates: start: 20190605, end: 20190609
  16. OGASTORO [Suspect]
     Active Substance: LANSOPRAZOLE
     Dosage: AS NECESSARY15.0MG UNKNOWN
     Route: 048
     Dates: end: 20190604
  17. EUTHYROX [Concomitant]
     Active Substance: LEVOTHYROXINE SODIUM
  18. BECOZYME [Concomitant]
     Active Substance: VITAMINS
     Dates: start: 20190603
  19. BELOC ZOK [Suspect]
     Active Substance: METOPROLOL SUCCINATE
     Dosage: 12.5MG UNKNOWN
     Route: 048
     Dates: end: 20190611
  20. CORDARONE [Suspect]
     Active Substance: AMIODARONE HYDROCHLORIDE
     Dosage: 200.0MG UNKNOWN
     Route: 048
     Dates: start: 20190606, end: 20190614
  21. CIPROFLOXACIN. [Suspect]
     Active Substance: CIPROFLOXACIN
     Dosage: 500.0MG UNKNOWN
     Route: 048
     Dates: start: 20190612, end: 20190613
  22. OGASTORO [Suspect]
     Active Substance: LANSOPRAZOLE
     Dosage: 15.0MG UNKNOWN
     Route: 048
     Dates: start: 20190605, end: 20190614
  23. XARELTO [Concomitant]
     Active Substance: RIVAROXABAN
     Dates: end: 20190604

REACTIONS (2)
  - Cholestatic liver injury [Not Recovered/Not Resolved]
  - Blood creatine increased [Not Recovered/Not Resolved]

NARRATIVE: CASE EVENT DATE: 20190604
